FAERS Safety Report 4265981-8 (Version None)
Quarter: 2004Q1

REPORT INFORMATION
  Report Type: 
  Country: None (occurrence: None)
  Receive Date: 20040106
  Receipt Date: 20031223
  Transmission Date: 20041129
  Serious: Yes (Other)
  Sender: FDA-Public Use
  Company Number: CAP03000253

PATIENT
  Age: 52 Year
  Sex: Female

DRUGS (4)
  1. ACTONEL [Suspect]
     Indication: OSTEOPOROSIS
     Dates: start: 20030801, end: 20030801
  2. THYROXIN (LEVOTHYROXINE SODIUM) [Concomitant]
  3. CALCIUM [Concomitant]
  4. DRUG NOS [Concomitant]

REACTIONS (18)
  - ALOPECIA [None]
  - ARTHRALGIA [None]
  - BACK PAIN [None]
  - CHEST WALL PAIN [None]
  - DRUG HYPERSENSITIVITY [None]
  - EXOSTOSIS [None]
  - GAIT DISTURBANCE [None]
  - JOINT EFFUSION [None]
  - JOINT STIFFNESS [None]
  - LIVIDITY [None]
  - LOCALISED OSTEOARTHRITIS [None]
  - NODAL OSTEOARTHRITIS [None]
  - OEDEMA PERIPHERAL [None]
  - PAIN IN EXTREMITY [None]
  - SYNOVITIS [None]
  - TELANGIECTASIA [None]
  - TENDON DISORDER [None]
  - TENDONITIS [None]
